FAERS Safety Report 19317598 (Version 2)
Quarter: 2022Q1

REPORT INFORMATION
  Report Type: Spontaneous
  Country: US (occurrence: US)
  Receive Date: 20210527
  Receipt Date: 20220303
  Transmission Date: 20220423
  Serious: No
  Sender: FDA-Public Use
  Company Number: US-PFIZER INC-2021480731

PATIENT
  Age: 60 Year
  Sex: Female

DRUGS (1)
  1. XELJANZ XR [Suspect]
     Active Substance: TOFACITINIB CITRATE
     Indication: Rheumatoid arthritis
     Dosage: 11 MG, 1X/DAY
     Route: 048
     Dates: start: 2018

REACTIONS (11)
  - Intentional dose omission [Unknown]
  - Musculoskeletal stiffness [Unknown]
  - Myalgia [Unknown]
  - Erythema [Unknown]
  - Feeling hot [Unknown]
  - Therapeutic product effect incomplete [Unknown]
  - Pain [Unknown]
  - Inflammation [Unknown]
  - Condition aggravated [Unknown]
  - Contusion [Recovered/Resolved]
  - Pain in extremity [Not Recovered/Not Resolved]
